FAERS Safety Report 5573321-7 (Version None)
Quarter: 2007Q4

REPORT INFORMATION
  Report Type: 
  Country: None (occurrence: None)
  Receive Date: 20071130
  Receipt Date: 20070102
  Transmission Date: 20080405
  Serious: Yes (Other)
  Sender: FDA-Public Use
  Company Number: WAES 0606USA00924

PATIENT
  Age: 69 Year
  Sex: Female
  Weight: 58.9676 kg

DRUGS (14)
  1. FOSAMAX [Suspect]
     Indication: OSTEOPOROSIS
     Dosage: 10 MG DAILY PO
     Route: 048
     Dates: start: 19990101, end: 20010101
  2. FOSAMAX [Suspect]
     Indication: OSTEOPOROSIS
     Dosage: 70 MG WKY PO
     Route: 048
     Dates: start: 20010101, end: 20060101
  3. ARAVA [Concomitant]
  4. DARVOCET-N 100 [Concomitant]
  5. DIOVAN [Concomitant]
  6. LASIX [Concomitant]
  7. MOBIC [Concomitant]
  8. NASONEX [Concomitant]
  9. NEXIUM [Concomitant]
  10. TOPROL-XL [Concomitant]
  11. ZOLOFT [Concomitant]
  12. METHOTREXATE [Concomitant]
  13. POTASSIUM CHLORIDE [Concomitant]
  14. PREDNISONE TAB [Concomitant]

REACTIONS (1)
  - OSTEONECROSIS [None]
